FAERS Safety Report 17288345 (Version 1)
Quarter: 2020Q1

REPORT INFORMATION
  Report Type: Spontaneous
  Country: AU (occurrence: AU)
  Receive Date: 20200120
  Receipt Date: 20200120
  Transmission Date: 20200409
  Serious: Yes (Other)
  Sender: FDA-Public Use
  Company Number: AU-009507513-1910AUS012416

PATIENT
  Age: 69 Year
  Sex: Female
  Weight: 67.6 kg

DRUGS (5)
  1. STEGLUJAN [Suspect]
     Active Substance: ERTUGLIFLOZIN PIDOLATE\SITAGLIPTIN PHOSPHATE
     Indication: DIABETES MELLITUS
     Dosage: DOSE REPORTED AS 15/100, DAILY
     Route: 048
     Dates: start: 20190903, end: 20190910
  2. LIPEX [Concomitant]
     Dosage: 40 MILLIGRAM, QD
     Route: 048
  3. PRAZOSIN. [Concomitant]
     Active Substance: PRAZOSIN
     Dosage: 0.5 MILLIGRAM, BID
     Route: 048
  4. METFORMIN [Concomitant]
     Active Substance: METFORMIN HYDROCHLORIDE
     Dosage: 500 MILLIGRAM, BID
  5. IDAPREX [Concomitant]
     Active Substance: PERINDOPRIL ERBUMINE
     Dosage: 8 MILLIGRAM, QD
     Route: 048

REACTIONS (5)
  - Orthostatic hypotension [Unknown]
  - Blood glucose increased [Unknown]
  - Syncope [Recovered/Resolved]
  - Candida infection [Recovered/Resolved]
  - Malaise [Recovered/Resolved]

NARRATIVE: CASE EVENT DATE: 201909
